FAERS Safety Report 7786406-1 (Version None)
Quarter: 2011Q3

REPORT INFORMATION
  Report Type: 
  Country: None (occurrence: None)
  Receive Date: 20110929
  Receipt Date: 20110927
  Transmission Date: 20111222
  Serious: Yes (Death, Other)
  Sender: FDA-Public Use
  Company Number: PHEH2011US02654

PATIENT
  Sex: Female

DRUGS (2)
  1. ANTIARRHYTHMICS [Concomitant]
  2. RECLAST [Suspect]
     Dosage: UNK UKN, UNK
     Route: 042
     Dates: start: 20101001

REACTIONS (2)
  - DEATH [None]
  - DEMENTIA [None]
